FAERS Safety Report 8845104 (Version 1)
Quarter: 2012Q4

REPORT INFORMATION
  Report Type: 
  Country: CN (occurrence: CN)
  Receive Date: 20121017
  Receipt Date: 20121017
  Transmission Date: 20130627
  Serious: Yes (Other)
  Sender: FDA-Public Use
  Company Number: US-ASTELLAS-2012US009738

PATIENT

DRUGS (1)
  1. TARCEVA [Suspect]
     Indication: ADENOCARCINOMA
     Dosage: 150 mg, UID/QD
     Route: 048

REACTIONS (1)
  - Epilepsy [Recovering/Resolving]
